FAERS Safety Report 9102400 (Version 3)
Quarter: 2013Q2

REPORT INFORMATION
  Report Type: Report from Study
  Country: US (occurrence: US)
  Receive Date: 20130219
  Receipt Date: 20130405
  Transmission Date: 20140414
  Serious: Yes (Death, Life-Threatening, Hospitalization)
  Sender: FDA-Public Use
  Company Number: US-EISAI INC-E7389-03544-CLI-US

PATIENT
  Age: 68 Year
  Sex: Female
  Weight: 80 kg

DRUGS (6)
  1. E7389 (BOLD) [Suspect]
     Indication: LEIOMYOSARCOMA METASTATIC
     Route: 041
     Dates: start: 20121219, end: 20130205
  2. METOPROLOL [Concomitant]
     Indication: HYPERTENSION
     Route: 048
  3. LEVOTHYROXINE [Concomitant]
     Indication: HYPOTHYROIDISM
     Route: 048
  4. LOVENOX [Concomitant]
     Indication: PULMONARY EMBOLISM
     Route: 058
     Dates: start: 20121211
  5. HYDROCODONE [Concomitant]
     Indication: PAIN
     Route: 048
  6. COMBIVENT [Concomitant]
     Indication: DYSPNOEA
     Route: 048

REACTIONS (1)
  - Sepsis [Fatal]
